FAERS Safety Report 9959252 (Version 2)
Quarter: 2014Q1

REPORT INFORMATION
  Report Type: Report from Study
  Country: US (occurrence: US)
  Receive Date: 20140305
  Receipt Date: 20140305
  Transmission Date: 20141002
  Serious: No
  Sender: FDA-Public Use
  Company Number: US-ABBVIE-13P-163-1094879-00

PATIENT
  Age: 48 Year
  Sex: Female

DRUGS (4)
  1. HUMIRA [Suspect]
     Indication: PSORIASIS
     Dates: start: 20130209
  2. HUMIRA [Suspect]
     Dates: start: 20130616
  3. METFORMIN [Concomitant]
     Indication: DIABETES MELLITUS
  4. ANTIHYPERTENSIVES [Concomitant]
     Indication: HYPERTENSION

REACTIONS (3)
  - Pharyngeal erythema [Not Recovered/Not Resolved]
  - Pyrexia [Recovered/Resolved]
  - Rash [Not Recovered/Not Resolved]
